FAERS Safety Report 4798650-6 (Version None)
Quarter: 2005Q4

REPORT INFORMATION
  Report Type: 
  Country: None (occurrence: None)
  Receive Date: 20051014
  Receipt Date: 20051005
  Transmission Date: 20060501
  Serious: Yes (Disabling)
  Sender: FDA-Public Use
  Company Number: FI-JNJFOC-20051001034

PATIENT
  Sex: Female

DRUGS (5)
  1. TOPAMAX [Suspect]
     Indication: EPILEPSY
     Route: 048
  2. TEGRETOL [Concomitant]
     Indication: EPILEPSY
     Dosage: 400MG AND 200MG TABLETS
     Route: 048
  3. RIVATRIL [Concomitant]
     Indication: EPILEPSY
     Route: 048
  4. TRUXAL [Concomitant]
     Indication: MOOD ALTERED
     Route: 048
  5. ZOLOFT [Concomitant]
     Indication: MOOD ALTERED
     Route: 048

REACTIONS (4)
  - ALOPECIA TOTALIS [None]
  - ANXIETY [None]
  - RASH FOLLICULAR [None]
  - WEIGHT DECREASED [None]
